FAERS Safety Report 12697909 (Version 1)
Quarter: 2016Q3

REPORT INFORMATION
  Report Type: Spontaneous
  Country: CN (occurrence: CN)
  Receive Date: 20160830
  Receipt Date: 20160830
  Transmission Date: 20161109
  Serious: Yes (Death)
  Sender: FDA-Public Use
  Company Number: CN-PFIZER INC-2016402431

PATIENT
  Sex: Male

DRUGS (1)
  1. SOLU-MEDROL [Suspect]
     Active Substance: METHYLPREDNISOLONE SODIUM SUCCINATE
     Indication: SPINAL CORD INJURY
     Dosage: 40 MG/KG, 1X/DAY
     Route: 042
     Dates: start: 2010, end: 2010

REACTIONS (2)
  - Death [Fatal]
  - Infection [Unknown]
